FAERS Safety Report 5114323-4 (Version None)
Quarter: 2006Q3

REPORT INFORMATION
  Report Type: 
  Country: None (occurrence: None)
  Receive Date: 20060925
  Receipt Date: 20060915
  Transmission Date: 20061208
  Serious: Yes (Disabling)
  Sender: FDA-Public Use
  Company Number: DK-MERCK-0609DNK00006

PATIENT
  Age: 47 Year
  Sex: Female
  Weight: 58 kg

DRUGS (1)
  1. TIMOPTIC [Suspect]
     Indication: GLAUCOMA
     Route: 047
     Dates: start: 20000920, end: 20030501

REACTIONS (2)
  - ALOPECIA AREATA [None]
  - HYPERTHYROIDISM [None]
